FAERS Safety Report 15689742 (Version 8)
Quarter: 2019Q1

REPORT INFORMATION
  Report Type: Spontaneous
  Country: US (occurrence: US)
  Receive Date: 20181205
  Receipt Date: 20190111
  Transmission Date: 20190417
  Serious: Yes (Hospitalization)
  Sender: FDA-Public Use
  Company Number: US-ACTELION-A-NJ2018-182274

PATIENT
  Age: 71 Year
  Sex: Male
  Weight: 130.61 kg

DRUGS (2)
  1. SILDENAFIL CITRATE. [Concomitant]
     Active Substance: SILDENAFIL CITRATE
  2. VELETRI [Suspect]
     Active Substance: EPOPROSTENOL
     Indication: PULMONARY ARTERIAL HYPERTENSION
     Dosage: 6 NG/KG, PER MIN
     Route: 042
     Dates: start: 20181115, end: 20181219

REACTIONS (11)
  - Rash [Not Recovered/Not Resolved]
  - Pain in jaw [Unknown]
  - Peripheral swelling [Unknown]
  - Cellulitis [Unknown]
  - Rash pruritic [Not Recovered/Not Resolved]
  - Fluid retention [Unknown]
  - Erythema [Not Recovered/Not Resolved]
  - Dyspnoea [Unknown]
  - Localised infection [Unknown]
  - Diarrhoea [Recovering/Resolving]
  - Drug hypersensitivity [Not Recovered/Not Resolved]

NARRATIVE: CASE EVENT DATE: 20181205
